FAERS Safety Report 11371257 (Version 1)
Quarter: 2015Q3

REPORT INFORMATION
  Report Type: Spontaneous
  Country: RS (occurrence: RS)
  Receive Date: 20150812
  Receipt Date: 20150812
  Transmission Date: 20151125
  Serious: Yes (Life-Threatening)
  Sender: FDA-Public Use
  Company Number: RS-ROXANE LABORATORIES, INC.-2015-RO-01306RO

PATIENT
  Age: 37 Year
  Sex: Male

DRUGS (5)
  1. METRONIDAZOLE. [Suspect]
     Active Substance: METRONIDAZOLE
     Indication: CELLULITIS
     Route: 065
  2. CEFTRIAXONE. [Suspect]
     Active Substance: CEFTRIAXONE
     Indication: CELLULITIS
     Route: 065
  3. GENTAMICIN. [Suspect]
     Active Substance: GENTAMICIN
     Indication: CELLULITIS
     Route: 065
  4. METHADONE [Suspect]
     Active Substance: METHADONE HYDROCHLORIDE
     Indication: DRUG DEPENDENCE
     Dosage: 60 MG
     Route: 065
  5. DIAZEPAM. [Suspect]
     Active Substance: DIAZEPAM
     Indication: DRUG DEPENDENCE
     Dosage: 30 MG
     Route: 065

REACTIONS (4)
  - Electrocardiogram QT prolonged [Recovered/Resolved]
  - Cardiotoxicity [Recovered/Resolved]
  - Cardio-respiratory arrest [Recovered/Resolved]
  - Torsade de pointes [Recovered/Resolved]
